FAERS Safety Report 15279575 (Version 1)
Quarter: 2018Q3

REPORT INFORMATION
  Report Type: Spontaneous
  Country: US (occurrence: US)
  Receive Date: 20180730
  Receipt Date: 20180730
  Transmission Date: 20181010
  Serious: Yes (Hospitalization)
  Sender: FDA-Public Use
  Company Number: None

PATIENT
  Age: 55 Year
  Sex: Female

DRUGS (13)
  1. HYDROXYCHLOROQUINE 200MG [Concomitant]
     Active Substance: HYDROXYCHLOROQUINE
  2. VITAMIN D 50,000 UNITS [Concomitant]
  3. MYCOPHENOLATE [Suspect]
     Active Substance: MYCOPHENOLIC ACID
     Indication: TRANSPLANT
     Route: 048
     Dates: start: 20180210
  4. DESVENLAFAXINE ER [Concomitant]
     Active Substance: DESVENLAFAXINE
  5. PANTOPRAZOLE 40MG [Concomitant]
     Active Substance: PANTOPRAZOLE SODIUM
  6. REXULTI 1MG [Concomitant]
  7. METOPROLOL SUCCINATE ER 25MG [Concomitant]
  8. TRAZODONE [Concomitant]
     Active Substance: TRAZODONE HYDROCHLORIDE
  9. VENTOLIN HFA [Concomitant]
     Active Substance: ALBUTEROL SULFATE
  10. DILTIAZEM 30MG [Concomitant]
  11. ATORVASTATIN 40MG [Concomitant]
     Active Substance: ATORVASTATIN
  12. LYRICA [Concomitant]
     Active Substance: PREGABALIN
  13. ALPRAZOLAM 0.5MG [Concomitant]
     Active Substance: ALPRAZOLAM

REACTIONS (6)
  - Trismus [None]
  - Back pain [None]
  - Chest pain [None]
  - Musculoskeletal pain [None]
  - Pain in extremity [None]
  - Dyspnoea [None]

NARRATIVE: CASE EVENT DATE: 20180612
